FAERS Safety Report 10083805 (Version 1)
Quarter: 2014Q2

REPORT INFORMATION
  Report Type: Report from Study
  Country: AU (occurrence: AU)
  Receive Date: 20140417
  Receipt Date: 20140417
  Transmission Date: 20141212
  Serious: Yes (Hospitalization)
  Sender: FDA-Public Use
  Company Number: PHHY2014AU046268

PATIENT
  Sex: Male

DRUGS (2)
  1. CLOZARIL [Suspect]
     Dosage: 300 MG, UNK
     Dates: start: 20130205
  2. CLOZARIL [Suspect]
     Dosage: UNK

REACTIONS (2)
  - Malaise [Unknown]
  - Incorrect dose administered [Unknown]
